FAERS Safety Report 6907704-7 (Version None)
Quarter: 2010Q3

REPORT INFORMATION
  Report Type: 
  Country: None (occurrence: None)
  Receive Date: 20100805
  Receipt Date: 20100730
  Transmission Date: 20110219
  Serious: Yes (Other)
  Sender: FDA-Public Use
  Company Number: US-ROXANE LABORATORIES, INC.-2010-DE-04050GD

PATIENT
  Age: 24 Year
  Sex: Female

DRUGS (6)
  1. DEXTROMETHORPHAN [Suspect]
     Indication: COUGH
  2. CODEINE [Suspect]
     Indication: COUGH
  3. PENTOXYVERIN [Suspect]
     Indication: COUGH
  4. METHYLPHENIDATE [Suspect]
  5. TOPIRAMATE [Suspect]
  6. PSEUDOEPHEDRINE [Suspect]

REACTIONS (2)
  - ACUTE PSYCHOSIS [None]
  - DRUG INTERACTION [None]
